FAERS Safety Report 12892666 (Version 3)
Quarter: 2017Q1

REPORT INFORMATION
  Report Type: Spontaneous
  Country: US (occurrence: US)
  Receive Date: 20161028
  Receipt Date: 20170203
  Transmission Date: 20170428
  Serious: No
  Sender: FDA-Public Use
  Company Number: US-TAKEDA-2016MPI009256

PATIENT
  Sex: Female
  Weight: 53.97 kg

DRUGS (3)
  1. REVLIMID [Suspect]
     Active Substance: LENALIDOMIDE
     Indication: PLASMA CELL MYELOMA
     Dosage: UNK
     Route: 065
  2. NINLARO [Suspect]
     Active Substance: IXAZOMIB
     Indication: PLASMA CELL MYELOMA
     Dosage: 4 MG, UNK
     Route: 048
     Dates: start: 20161005
  3. NINLARO [Suspect]
     Active Substance: IXAZOMIB
     Dosage: 3 MG, UNK
     Dates: end: 20170116

REACTIONS (6)
  - Therapy change [Unknown]
  - Diarrhoea [Unknown]
  - Fatigue [Unknown]
  - Asthenia [Unknown]
  - Product difficult to remove [Unknown]
  - Fatigue [Not Recovered/Not Resolved]
